FAERS Safety Report 21374596 (Version 3)
Quarter: 2023Q1

REPORT INFORMATION
  Report Type: Report from Study
  Country: US (occurrence: US)
  Receive Date: 20220926
  Receipt Date: 20230323
  Transmission Date: 20230417
  Serious: Yes (Hospitalization)
  Sender: FDA-Public Use
  Company Number: US-ABBVIE-4130151

PATIENT
  Age: 69 Year
  Sex: Male

DRUGS (1)
  1. SKYRIZI [Suspect]
     Active Substance: RISANKIZUMAB-RZAA
     Indication: Crohn^s disease
     Route: 042
     Dates: start: 20220728

REACTIONS (4)
  - Large intestine infection [Not Recovered/Not Resolved]
  - Abdominal distension [Unknown]
  - Incision site pain [Not Recovered/Not Resolved]
  - Colectomy [Not Recovered/Not Resolved]

NARRATIVE: CASE EVENT DATE: 20230221
